FAERS Safety Report 6173147-X (Version None)
Quarter: 2009Q2

REPORT INFORMATION
  Report Type: 
  Country: None (occurrence: None)
  Receive Date: 20090430
  Receipt Date: 20090420
  Transmission Date: 20091009
  Serious: Yes (Other)
  Sender: FDA-Public Use
  Company Number: JP-PFIZER INC-2009201478

PATIENT

DRUGS (9)
  1. ZITHROMAX [Suspect]
     Indication: BRONCHITIS
     Dosage: UNK
     Route: 048
     Dates: start: 20090330, end: 20090401
  2. BOUFUUTSUUSHOUSAN [Suspect]
     Indication: BRONCHITIS
     Dates: start: 20090201
  3. CRAVIT [Concomitant]
     Dates: start: 20090201
  4. PARIET [Concomitant]
     Dates: start: 20090201
  5. MUCODYNE [Concomitant]
     Dates: start: 20090201
  6. MUCOSOLVAN [Concomitant]
     Dates: start: 20090201
  7. THEOLONG [Concomitant]
     Dates: start: 20090101
  8. SALMETEROL XINAFOATE [Concomitant]
     Dates: start: 20090101
  9. HOKUNALIN [Concomitant]
     Route: 062
     Dates: start: 20090101

REACTIONS (1)
  - INTERSTITIAL LUNG DISEASE [None]
